FAERS Safety Report 16947481 (Version 1)
Quarter: 2019Q4

REPORT INFORMATION
  Report Type: Spontaneous
  Country: AT (occurrence: AT)
  Receive Date: 20191022
  Receipt Date: 20191022
  Transmission Date: 20200122
  Serious: Yes (Other)
  Sender: FDA-Public Use
  Company Number: AT-PFIZER INC-2019451497

PATIENT
  Age: 47 Year
  Sex: Female

DRUGS (12)
  1. SOLIAN [Concomitant]
     Active Substance: AMISULPRIDE
     Dosage: 400 MG, UNK (SINCE MONTHS)
     Dates: end: 20190821
  2. TEMESTA [LORAZEPAM] [Suspect]
     Active Substance: LORAZEPAM
     Dosage: 1.25 MG, UNK
     Dates: start: 20190906
  3. ABILIFY [Suspect]
     Active Substance: ARIPIPRAZOLE
     Dosage: 15 MG, UNK
     Dates: start: 20190904, end: 20190906
  4. TEMESTA [LORAZEPAM] [Suspect]
     Active Substance: LORAZEPAM
     Dosage: 3.75 MG, UNK
     Dates: start: 20190901, end: 20190903
  5. SOLIAN [Concomitant]
     Active Substance: AMISULPRIDE
     Dosage: 600 MG, UNK
     Dates: start: 20190822, end: 20190828
  6. SOLIAN [Concomitant]
     Active Substance: AMISULPRIDE
     Dosage: 600 MG, UNK
     Dates: start: 20190831
  7. TEMESTA [LORAZEPAM] [Suspect]
     Active Substance: LORAZEPAM
     Dosage: 3.75 MG, UNK
     Dates: start: 20190830, end: 20190830
  8. TEMESTA [LORAZEPAM] [Suspect]
     Active Substance: LORAZEPAM
     Dosage: 6.25 MG, UNK
     Dates: start: 20190831, end: 20190831
  9. ABILIFY [Suspect]
     Active Substance: ARIPIPRAZOLE
     Dosage: 10 MG, UNK
     Dates: start: 20190831, end: 20190903
  10. TEMESTA [LORAZEPAM] [Suspect]
     Active Substance: LORAZEPAM
     Dosage: 5 MG, UNK
     Dates: start: 20190823, end: 20190829
  11. TEMESTA [LORAZEPAM] [Suspect]
     Active Substance: LORAZEPAM
     Dosage: 2.5 MG, UNK
     Dates: start: 20190904, end: 20190905
  12. SOLIAN [Concomitant]
     Active Substance: AMISULPRIDE
     Dosage: 800 MG, UNK
     Dates: start: 20190829, end: 20190830

REACTIONS (1)
  - Myalgia [Recovered/Resolved]

NARRATIVE: CASE EVENT DATE: 20190906
